FAERS Safety Report 8433712-3 (Version None)
Quarter: 2012Q2

REPORT INFORMATION
  Report Type: 
  Country: None (occurrence: None)
  Receive Date: 20120613
  Receipt Date: 20120604
  Transmission Date: 20120825
  Serious: Yes (Other)
  Sender: FDA-Public Use
  Company Number: BR-JNJFOC-20120603805

PATIENT
  Age: 8 Year
  Sex: Female
  Weight: 27 kg

DRUGS (2)
  1. CARBAMAZEPINE [Concomitant]
     Route: 065
     Dates: start: 20120101
  2. HALDOL [Suspect]
     Indication: CEREBRAL PALSY
     Route: 065
     Dates: start: 20120101

REACTIONS (4)
  - OFF LABEL USE [None]
  - FEELING JITTERY [None]
  - MENTAL IMPAIRMENT [None]
  - APHASIA [None]
